FAERS Safety Report 16289435 (Version 2)
Quarter: 2025Q3

REPORT INFORMATION
  Report Type: Spontaneous
  Country: US (occurrence: US)
  Receive Date: 20190509
  Receipt Date: 20250804
  Transmission Date: 20251020
  Serious: Yes (Life-Threatening, Hospitalization, Other)
  Sender: AUROBINDO
  Company Number: US-AUROBINDO-AUR-APL-2019-024541

PATIENT
  Age: 35 Year
  Sex: Female

DRUGS (2)
  1. OXYCODONE [Suspect]
     Active Substance: OXYCODONE
     Indication: Product used for unknown indication
     Route: 065
  2. FENTANYL [Suspect]
     Active Substance: FENTANYL
     Indication: Product used for unknown indication
     Route: 065

REACTIONS (6)
  - Cardiac failure [Recovering/Resolving]
  - Disease recurrence [Recovering/Resolving]
  - Cardiogenic shock [Recovering/Resolving]
  - Stress cardiomyopathy [Recovering/Resolving]
  - Drug withdrawal syndrome [Recovering/Resolving]
  - Drug abuse [Recovering/Resolving]
